FAERS Safety Report 15995502 (Version 2)
Quarter: 2019Q1

REPORT INFORMATION
  Report Type: Other
  Country: JP (occurrence: JP)
  Receive Date: 20190222
  Receipt Date: 20190227
  Transmission Date: 20190418
  Serious: Yes (Death, Hospitalization, Other)
  Sender: FDA-Public Use
  Company Number: JP-DSJP-DSJ-2019-106285

PATIENT

DRUGS (10)
  1. MAGMITT [Concomitant]
     Active Substance: MAGNESIUM OXIDE
     Dosage: 330 MG, TID, AFTER EACH MEAL
     Route: 065
     Dates: end: 20190124
  2. SENNOSIDE                          /00571901/ [Concomitant]
     Active Substance: SENNOSIDES A AND B
     Dosage: 12 MG, QD, AFTER DINNER
     Route: 065
     Dates: end: 20190124
  3. FAMOTIDINE. [Concomitant]
     Active Substance: FAMOTIDINE
     Dosage: 10 MG, BID, AFTER BREAKFAST AND DINNER
     Route: 065
     Dates: end: 20190124
  4. FUROSEMIDE. [Concomitant]
     Active Substance: FUROSEMIDE
     Dosage: 20 MG, QD, AFTER BREAKFAST
     Route: 065
     Dates: end: 20190124
  5. BISOPROLOL                         /00802602/ [Concomitant]
     Active Substance: BISOPROLOL
     Dosage: 2.5 MG, QD, AFTER BREAKFAST
     Route: 065
     Dates: end: 20190124
  6. SPIRONOLACTONE. [Concomitant]
     Active Substance: SPIRONOLACTONE
     Dosage: 25 MG, QD, AFTER BREAKFAST
     Route: 065
     Dates: end: 20190124
  7. ASPARA POTASSIUM [Concomitant]
     Active Substance: POTASSIUM ASPARTATE
     Dosage: 300 MG, TID, AFTER EACH MEAL
     Route: 065
     Dates: end: 20190124
  8. YOKUKANSAN [Concomitant]
     Active Substance: HERBALS
     Dosage: 2.5 G, TID, AFTER EACH MEAL
     Route: 065
     Dates: end: 20190124
  9. LIXIANA OD TABLETS 30MG [Suspect]
     Active Substance: EDOXABAN TOSYLATE
     Indication: ATRIAL FIBRILLATION
     Dosage: 30 MG, QD
     Route: 048
     Dates: end: 20190124
  10. FEBURIC [Concomitant]
     Active Substance: FEBUXOSTAT
     Dosage: 10 MG, QD, AFTER BREAKFAST
     Route: 065
     Dates: end: 20190124

REACTIONS (4)
  - Gastric ulcer [Unknown]
  - Renal impairment [Unknown]
  - Upper gastrointestinal haemorrhage [Fatal]
  - Shock haemorrhagic [Fatal]

NARRATIVE: CASE EVENT DATE: 20190124
